FAERS Safety Report 8477631-5 (Version None)
Quarter: 2012Q2

REPORT INFORMATION
  Report Type: 
  Country: None (occurrence: None)
  Receive Date: 20120625
  Receipt Date: 20120625
  Transmission Date: 20120825
  Serious: Yes (Life-Threatening, Hospitalization)
  Sender: FDA-Public Use
  Company Number: None

PATIENT
  Sex: Female
  Weight: 82.5547 kg

DRUGS (2)
  1. LEVOTHYROXINE SODIUM [Suspect]
     Indication: HYPOTHYROIDISM
     Dates: start: 19870615, end: 20120623
  2. CARVEDILOL [Suspect]
     Indication: HYPERTENSION
     Dates: start: 20120215, end: 20120617

REACTIONS (8)
  - HYPERTENSION [None]
  - ASTHENIA [None]
  - CARDIAC FLUTTER [None]
  - SLUGGISHNESS [None]
  - PRODUCT QUALITY ISSUE [None]
  - DIZZINESS [None]
  - PALPITATIONS [None]
  - ARTHRALGIA [None]
